FAERS Safety Report 12975721 (Version 1)
Quarter: 2016Q4

REPORT INFORMATION
  Report Type: Report from Study
  Country: None (occurrence: HR)
  Receive Date: 20161125
  Receipt Date: 20161125
  Transmission Date: 20170207
  Serious: Yes (Other)
  Sender: FDA-Public Use
  Company Number: HR-ABBVIE-16K-216-1786513-00

PATIENT
  Sex: Male

DRUGS (1)
  1. DUODOPA [Suspect]
     Active Substance: CARBIDOPA\LEVODOPA
     Indication: PARKINSON^S DISEASE
     Route: 050

REACTIONS (4)
  - Stoma site discharge [Not Recovered/Not Resolved]
  - Citrobacter infection [Not Recovered/Not Resolved]
  - Proteus infection [Not Recovered/Not Resolved]
  - Stoma site erythema [Not Recovered/Not Resolved]
